FAERS Safety Report 9349618 (Version 2)
Quarter: 2013Q2

REPORT INFORMATION
  Report Type: Spontaneous
  Country: BR (occurrence: None)
  Receive Date: 20130611
  Receipt Date: 20130625
  Transmission Date: 20140414
  Serious: Yes (Death)
  Sender: FDA-Public Use
  Company Number: BR-1198562

PATIENT
  Age: 78 Year
  Sex: Male

DRUGS (3)
  1. TRAVATAN [Suspect]
     Indication: GLAUCOMA
     Route: 047
     Dates: start: 2010
  2. PROLOPA [Concomitant]
  3. ALOIS [Concomitant]

REACTIONS (3)
  - Dementia Alzheimer^s type [None]
  - Parkinson^s disease [None]
  - Pneumonia [None]
